FAERS Safety Report 7841307-5 (Version None)
Quarter: 2011Q4

REPORT INFORMATION
  Report Type: 
  Country: None (occurrence: None)
  Receive Date: 20111025
  Receipt Date: 20111012
  Transmission Date: 20120403
  Serious: Yes (Death)
  Sender: FDA-Public Use
  Company Number: US-MYLANLABS-2009S1005247

PATIENT
  Age: 40 Year
  Sex: Female

DRUGS (1)
  1. FENTANYL-100 [Suspect]
     Dates: start: 20080101

REACTIONS (1)
  - TOXICITY TO VARIOUS AGENTS [None]
